FAERS Safety Report 13372846 (Version 1)
Quarter: 2017Q1

REPORT INFORMATION
  Report Type: Spontaneous
  Country: US (occurrence: US)
  Receive Date: 20170327
  Receipt Date: 20170327
  Transmission Date: 20170429
  Serious: No
  Sender: FDA-Public Use
  Company Number: US-TEVA-669321USA

PATIENT
  Age: 73 Year
  Sex: Male
  Weight: 81.72 kg

DRUGS (3)
  1. CABERGOLINE. [Suspect]
     Active Substance: CABERGOLINE
     Indication: PITUITARY TUMOUR
     Route: 065
  2. CABERGOLINE. [Suspect]
     Active Substance: CABERGOLINE
     Indication: BLOOD CORTISOL ABNORMAL
  3. CABERGOLINE. [Suspect]
     Active Substance: CABERGOLINE
     Indication: ADRENAL INSUFFICIENCY

REACTIONS (1)
  - Prostatic specific antigen abnormal [Unknown]
